FAERS Safety Report 21035492 (Version 1)
Quarter: 2022Q3

REPORT INFORMATION
  Report Type: Spontaneous
  Country: US (occurrence: None)
  Receive Date: 20220701
  Receipt Date: 20220701
  Transmission Date: 20221026
  Serious: Yes (unspecified)
  Sender: FDA-Public Use
  Company Number: None

PATIENT
  Age: 8 Month
  Sex: Female
  Weight: 5 kg

DRUGS (2)
  1. SUGAMMADEX [Suspect]
     Active Substance: SUGAMMADEX
     Indication: Neuromuscular blockade reversal
     Dosage: FREQUENCY : ONCE;?
     Route: 040
     Dates: start: 20220510, end: 20220510
  2. COSMETICS [Suspect]
     Active Substance: COSMETICS

REACTIONS (3)
  - Bradycardia [None]
  - Hypotension [None]
  - Cardiac procedure complication [None]

NARRATIVE: CASE EVENT DATE: 20220510
